FAERS Safety Report 14325451 (Version 4)
Quarter: 2020Q1

REPORT INFORMATION
  Report Type: Report from Study
  Country: US (occurrence: US)
  Receive Date: 20171226
  Receipt Date: 20200211
  Transmission Date: 20200409
  Serious: Yes (Hospitalization, Other)
  Sender: FDA-Public Use
  Company Number: US-JAZZ-2016-US-024548

PATIENT
  Age: 67 Year
  Sex: Male

DRUGS (23)
  1. LOSARTAN POTASSIUM. [Concomitant]
     Active Substance: LOSARTAN POTASSIUM
  2. ABILIFY [Concomitant]
     Active Substance: ARIPIPRAZOLE
  3. LAMICTAL [Concomitant]
     Active Substance: LAMOTRIGINE
  4. VITAMIN B12 [Concomitant]
     Active Substance: CYANOCOBALAMIN
  5. ZETIA [Concomitant]
     Active Substance: EZETIMIBE
  6. FLUVASTATIN SODIUM. [Concomitant]
     Active Substance: FLUVASTATIN SODIUM
  7. FLOVENT HFA [Concomitant]
     Active Substance: FLUTICASONE PROPIONATE
  8. PRAVASTATIN SODIUM. [Concomitant]
     Active Substance: PRAVASTATIN SODIUM
  9. VYTORIN [Concomitant]
     Active Substance: EZETIMIBE\SIMVASTATIN
  10. ASPIRIN [ACETYLSALICYLIC ACID] [Concomitant]
     Active Substance: ASPIRIN
  11. ALPRAZOLAM. [Concomitant]
     Active Substance: ALPRAZOLAM
  12. LYRICA [Concomitant]
     Active Substance: PREGABALIN
  13. VITAMIN C [Concomitant]
     Active Substance: ASCORBIC ACID
  14. NIASPAN [Concomitant]
     Active Substance: NIACIN
  15. PROTONIX [OMEPRAZOLE] [Concomitant]
     Active Substance: OMEPRAZOLE
  16. XYREM [Suspect]
     Active Substance: SODIUM OXYBATE
     Indication: NARCOLEPSY
     Dosage: 2.25 G, BID
     Route: 048
     Dates: start: 201204, end: 2012
  17. CLONAZEPAM. [Concomitant]
     Active Substance: CLONAZEPAM
  18. CO Q 10 [UBIDECARENONE] [Concomitant]
  19. WELLBUTRIN [Concomitant]
     Active Substance: BUPROPION HYDROCHLORIDE
  20. RAMIPRIL. [Concomitant]
     Active Substance: RAMIPRIL
  21. XYREM [Suspect]
     Active Substance: SODIUM OXYBATE
     Dosage: DOSE ADJUSTMENT
     Route: 048
     Dates: start: 2012, end: 2012
  22. XYREM [Suspect]
     Active Substance: SODIUM OXYBATE
     Dosage: 4.5 G, BID
     Route: 048
     Dates: start: 201206, end: 201802
  23. OMEGA 3 FISH OIL [FISH OIL] [Concomitant]

REACTIONS (3)
  - Lumbar spinal stenosis [Recovering/Resolving]
  - Condition aggravated [Recovering/Resolving]
  - Adjacent segment degeneration [Recovering/Resolving]

NARRATIVE: CASE EVENT DATE: 201608
